FAERS Safety Report 24588883 (Version 1)
Quarter: 2024Q4

REPORT INFORMATION
  Report Type: Spontaneous
  Country: CN (occurrence: CN)
  Receive Date: 20241107
  Receipt Date: 20241107
  Transmission Date: 20250114
  Serious: Yes (Other)
  Sender: PFIZER
  Company Number: CN-PFIZER INC-202400294509

PATIENT
  Age: 52 Year
  Sex: Female

DRUGS (3)
  1. CYTARABINE [Suspect]
     Active Substance: CYTARABINE
     Indication: Prophylaxis
     Dosage: 50 MG
     Route: 037
     Dates: start: 20240927
  2. METHOTREXATE SODIUM [Suspect]
     Active Substance: METHOTREXATE SODIUM
     Indication: Prophylaxis
     Dosage: 10 MG
     Route: 037
     Dates: start: 20240927
  3. DEXAMETHASONE [Suspect]
     Active Substance: DEXAMETHASONE
     Indication: Prophylaxis
     Dosage: 5 MG
     Route: 037
     Dates: start: 20240927

REACTIONS (2)
  - CSF protein increased [Unknown]
  - Blood lactate dehydrogenase increased [Unknown]
